FAERS Safety Report 8059589-6 (Version None)
Quarter: 2012Q1

REPORT INFORMATION
  Report Type: 
  Country: None (occurrence: None)
  Receive Date: 20120113
  Receipt Date: 20120106
  Transmission Date: 20120608
  Serious: Yes (Other)
  Sender: FDA-Public Use
  Company Number: IMP_05552_2012

PATIENT
  Age: 48 Year
  Sex: Female

DRUGS (2)
  1. CLONIDINE [Suspect]
     Indication: PRODUCT USED FOR UNKNOWN INDICATION
     Dosage: (DF)
  2. PROPRANOLOL [Suspect]
     Indication: PRODUCT USED FOR UNKNOWN INDICATION
     Dosage: (DF)

REACTIONS (4)
  - ACIDOSIS [None]
  - BLOOD PRESSURE SYSTOLIC DECREASED [None]
  - MULTIPLE DRUG OVERDOSE [None]
  - HEART RATE DECREASED [None]
